FAERS Safety Report 7423042-0 (Version None)
Quarter: 2011Q2

REPORT INFORMATION
  Report Type: 
  Country: None (occurrence: None)
  Receive Date: 20110419
  Receipt Date: 20110406
  Transmission Date: 20111010
  Serious: Yes (Hospitalization)
  Sender: FDA-Public Use
  Company Number: US-AMGEN-USASP2011010237

PATIENT
  Age: 48 Year
  Sex: Female

DRUGS (1)
  1. ENBREL [Suspect]
     Indication: RHEUMATOID ARTHRITIS
     Dosage: 50 MG, QWK
     Dates: start: 19990101

REACTIONS (9)
  - PAIN IN EXTREMITY [None]
  - INJECTION SITE PAIN [None]
  - DYSGRAPHIA [None]
  - NECK INJURY [None]
  - SUICIDE ATTEMPT [None]
  - ROTATOR CUFF SYNDROME [None]
  - MUSCULAR WEAKNESS [None]
  - HAND DEFORMITY [None]
  - PHYSICAL ASSAULT [None]
